FAERS Safety Report 18700304 (Version 2)
Quarter: 2021Q1

REPORT INFORMATION
  Report Type: Spontaneous
  Country: US (occurrence: US)
  Receive Date: 20210105
  Receipt Date: 20210227
  Transmission Date: 20210419
  Serious: No
  Sender: FDA-Public Use
  Company Number: US-LUPIN PHARMACEUTICALS INC.-2020-11090

PATIENT
  Age: 60 Year
  Sex: Male

DRUGS (2)
  1. BUDESONIDE;SALBUTAMOL [Concomitant]
     Indication: BRONCHOSPASM
     Dosage: UNK, ALBUTEROL/BUDESONIDE
  2. ALBUTEROL SULFATE INHALATION AEROSOL, 90 MCG/ACTUATION [Suspect]
     Active Substance: ALBUTEROL SULFATE
     Indication: BRONCHOSPASM
     Dosage: UNK
     Dates: start: 20201204

REACTIONS (4)
  - Therapeutic response decreased [Unknown]
  - Cough [Unknown]
  - Device malfunction [Unknown]
  - Wrong technique in product usage process [Unknown]

NARRATIVE: CASE EVENT DATE: 202012
